FAERS Safety Report 9325153 (Version 1)
Quarter: 2013Q2

REPORT INFORMATION
  Report Type: Spontaneous
  Country: US (occurrence: US)
  Receive Date: 20130603
  Receipt Date: 20130603
  Transmission Date: 20140414
  Serious: Yes (Other)
  Sender: FDA-Public Use
  Company Number: US-MERCK-1305USA016829

PATIENT
  Age: 56 Year
  Sex: Female

DRUGS (3)
  1. VICTRELIS [Suspect]
     Indication: HEPATITIS C
     Dosage: 800 MG, Q8H
     Route: 048
     Dates: start: 20120417, end: 20120626
  2. PEGINTRON [Suspect]
     Route: 058
  3. REBETOL [Suspect]
     Dosage: 400MG QAM, 600MG QPM
     Route: 048

REACTIONS (2)
  - Retinopathy [Not Recovered/Not Resolved]
  - Fatigue [Not Recovered/Not Resolved]
